FAERS Safety Report 7393388-3 (Version None)
Quarter: 2011Q2

REPORT INFORMATION
  Report Type: 
  Country: None (occurrence: None)
  Receive Date: 20110405
  Receipt Date: 20110328
  Transmission Date: 20111010
  Serious: Yes (Hospitalization)
  Sender: FDA-Public Use
  Company Number: JP-AMGEN-JPNSP2011004120

PATIENT
  Age: 49 Year
  Sex: Female
  Weight: 40 kg

DRUGS (4)
  1. ENBREL [Suspect]
     Indication: RHEUMATOID ARTHRITIS
     Dosage: 25 MG, WEEKLY
     Route: 058
     Dates: start: 20100501
  2. PREDONINE                          /00016201/ [Concomitant]
     Dosage: 0.5 DF, 1X/DAY
     Route: 048
  3. RHEUMATREX [Concomitant]
     Dosage: 6 MG, WEEKLY
     Route: 048
  4. AZULFIDINE [Concomitant]
     Dosage: 500 MG, 2X/DAY
     Route: 048

REACTIONS (1)
  - SKIN ULCER [None]
